FAERS Safety Report 7044214-3 (Version None)
Quarter: 2010Q4

REPORT INFORMATION
  Report Type: 
  Country: None (occurrence: None)
  Receive Date: 20101014
  Receipt Date: 20101006
  Transmission Date: 20110411
  Serious: Yes (Death)
  Sender: FDA-Public Use
  Company Number: US-BIOGENIDEC-2010BI034785

PATIENT
  Age: 49 Year
  Sex: Male
  Weight: 63 kg

DRUGS (2)
  1. TYSABRI [Suspect]
     Indication: MULTIPLE SCLEROSIS
     Route: 042
     Dates: start: 20091120, end: 20101001
  2. TYLENOL [Concomitant]
     Route: 048

REACTIONS (1)
  - DEATH [None]
